FAERS Safety Report 4774479-X (Version None)
Quarter: 2005Q3

REPORT INFORMATION
  Report Type: 
  Country: None (occurrence: None)
  Receive Date: 20050920
  Receipt Date: 20050913
  Transmission Date: 20060218
  Serious: Yes (Other)
  Sender: FDA-Public Use
  Company Number: 005640

PATIENT
  Sex: Female

DRUGS (7)
  1. MEDROXYPROGESTERONE ACETATE [Suspect]
     Dosage: ORAL
     Route: 048
  2. PREMPRO (MEDROXYPROGESTERONE ACETATE, ESTROGENS CONJUGATED) [Suspect]
     Dosage: ORAL
     Route: 048
  3. PREMARIN [Suspect]
     Dosage: ORAL
     Route: 048
  4. PROVERA [Suspect]
     Dosage: ORAL
     Route: 048
  5. CYCRIN [Suspect]
     Dosage: ORAL
     Route: 048
  6. ESTRADERM [Suspect]
     Dosage: ORAL
     Route: 048
  7. ESTROGEN NOS (ESTROGEN NOS) [Suspect]
     Dosage: ORAL
     Route: 048

REACTIONS (1)
  - BREAST CANCER FEMALE [None]
